FAERS Safety Report 16531468 (Version 2)
Quarter: 2019Q3

REPORT INFORMATION
  Report Type: Spontaneous
  Country: PT (occurrence: PT)
  Receive Date: 20190705
  Receipt Date: 20190729
  Transmission Date: 20191004
  Serious: Yes (Hospitalization, Other)
  Sender: FDA-Public Use
  Company Number: PT-PFIZER INC-2019279403

PATIENT
  Age: 37 Year
  Sex: Female

DRUGS (10)
  1. DOCETAXEL. [Suspect]
     Active Substance: DOCETAXEL
     Indication: BREAST CANCER FEMALE
     Dosage: 100 MG/M2, CYCLIC (EVERY 21 DAYS, 4 CYCLES)
     Route: 042
     Dates: start: 20140604, end: 20141117
  2. DOCETAXEL. [Suspect]
     Active Substance: DOCETAXEL
     Dosage: UNK
     Dates: start: 20180131
  3. PERTUZUMAB. [Suspect]
     Active Substance: PERTUZUMAB
     Indication: BREAST CANCER FEMALE
     Dosage: CYCLIC (BETWEEN 840-420 MG EVERY 21 DAYS)
     Route: 042
     Dates: start: 20180131
  4. CYCLOPHOSPHAMIDE. [Suspect]
     Active Substance: CYCLOPHOSPHAMIDE
     Indication: BREAST CANCER FEMALE
     Dosage: 600 MG/M2, CYCLIC (EVERY 21 DAYS, 4 CYCLES)
     Route: 042
     Dates: start: 20140604, end: 20141117
  5. DOXORUBICIN [Suspect]
     Active Substance: DOXORUBICIN
     Indication: BREAST CANCER FEMALE
     Dosage: 60 MG/M2, CYCLIC (EVERY 21 DAYS, 4 CYCLES)
     Route: 042
     Dates: start: 20140604, end: 20141117
  6. SIMVASTATIN. [Concomitant]
     Active Substance: SIMVASTATIN
     Dosage: 20 MG, 1X/DAY
  7. TAMOXIFEN [Suspect]
     Active Substance: TAMOXIFEN
     Indication: BREAST CANCER FEMALE
     Dosage: 20 MG, UNK
     Route: 048
     Dates: start: 201412, end: 201712
  8. GOSERELIN [Suspect]
     Active Substance: GOSERELIN
     Indication: BREAST CANCER FEMALE
     Dosage: 3.8 MG, CYCLIC (EVERY 28 DAYS)
     Route: 042
     Dates: start: 201412, end: 201712
  9. HERCEPTIN [Suspect]
     Active Substance: TRASTUZUMAB
     Dosage: 6 MG/KG, CYCLIC (EVERY 21 DAYS)
     Route: 042
     Dates: start: 20180131
  10. HERCEPTIN [Suspect]
     Active Substance: TRASTUZUMAB
     Indication: BREAST CANCER FEMALE
     Dosage: 6 MG/KG, CYCLIC (EVERY 21 DAYS)
     Route: 042
     Dates: start: 201409, end: 201508

REACTIONS (6)
  - Left ventricular dysfunction [Unknown]
  - Neuropathy peripheral [Recovered/Resolved]
  - Mucosal inflammation [Recovered/Resolved]
  - Urinary tract infection [Recovered/Resolved]
  - Febrile neutropenia [Recovered/Resolved]
  - Cardiotoxicity [Recovered/Resolved with Sequelae]

NARRATIVE: CASE EVENT DATE: 201409
